FAERS Safety Report 8166080-5 (Version None)
Quarter: 2012Q1

REPORT INFORMATION
  Report Type: 
  Country: None (occurrence: None)
  Receive Date: 20120227
  Receipt Date: 20110411
  Transmission Date: 20120608
  Serious: No
  Sender: FDA-Public Use
  Company Number: US-MYLANLABS-2011S1005364

PATIENT
  Age: 53 Year
  Sex: Female
  Weight: 68.04 kg

DRUGS (2)
  1. AMNESTEEM [Suspect]
     Indication: ACNE
     Dates: start: 20100420, end: 20110224
  2. CLARAVIS [Suspect]
     Indication: ACNE

REACTIONS (3)
  - NAUSEA [None]
  - DIARRHOEA [None]
  - NECK PAIN [None]
